FAERS Safety Report 10245036 (Version 1)
Quarter: 2014Q2

REPORT INFORMATION
  Report Type: Spontaneous
  Country: IT (occurrence: IT)
  Receive Date: 20140618
  Receipt Date: 20140618
  Transmission Date: 20141212
  Serious: Yes (Other)
  Sender: FDA-Public Use
  Company Number: IT-PFIZER INC-2014162911

PATIENT
  Age: 77 Year
  Sex: Male

DRUGS (2)
  1. LINEZOLID [Suspect]
     Indication: STAPHYLOCOCCAL INFECTION
     Dosage: 600 MG, DAILY
     Route: 042
  2. LINEZOLID [Suspect]
     Indication: INTRASPINAL ABSCESS

REACTIONS (3)
  - Off label use [Unknown]
  - Thrombocytopenia [Unknown]
  - Condition aggravated [Unknown]
